FAERS Safety Report 7457471-6 (Version None)
Quarter: 2011Q1

REPORT INFORMATION
  Report Type: 
  Country: None (occurrence: None)
  Receive Date: 20110302
  Receipt Date: 20100802
  Transmission Date: 20110831
  Serious: Yes (Death, Hospitalization, Other)
  Sender: FDA-Public Use
  Company Number: 163-21880-10011571

PATIENT
  Age: 83 Year
  Sex: Female

DRUGS (4)
  1. OXYGEN (OXYGEN) [Concomitant]
  2. DIURETICS (DIURETICS) [Concomitant]
  3. REVLIMID [Suspect]
     Indication: MULTIPLE MYELOMA
     Dosage: 25 MG, DAILY X 21 DAYS PER CYCLE, PO
     Route: 048
     Dates: start: 20080811, end: 20091101
  4. DEXAMETHASONE [Concomitant]

REACTIONS (4)
  - DEATH [None]
  - ANAEMIA [None]
  - PNEUMONIA [None]
  - OEDEMA PERIPHERAL [None]
